FAERS Safety Report 16431504 (Version 1)
Quarter: 2019Q2

REPORT INFORMATION
  Report Type: Spontaneous
  Country: FR (occurrence: FR)
  Receive Date: 20190614
  Receipt Date: 20190614
  Transmission Date: 20190711
  Serious: Yes (Hospitalization, Other)
  Sender: FDA-Public Use
  Company Number: FR-TAKEDA-2019TUS037480

PATIENT
  Age: 59 Year
  Sex: Male
  Weight: 93 kg

DRUGS (1)
  1. BRINTELLIX [Suspect]
     Active Substance: VORTIOXETINE HYDROBROMIDE
     Indication: DEPRESSION
     Dosage: 10 MILLIGRAM, QD
     Route: 048
     Dates: start: 20190426, end: 20190509

REACTIONS (3)
  - Vertigo [Recovered/Resolved]
  - Serotonin syndrome [Recovered/Resolved]
  - Nystagmus [Recovered/Resolved]

NARRATIVE: CASE EVENT DATE: 20190504
